APPROVED DRUG PRODUCT: DESVENLAFAXINE SUCCINATE
Active Ingredient: DESVENLAFAXINE SUCCINATE
Strength: EQ 25MG BASE
Dosage Form/Route: TABLET, EXTENDED RELEASE;ORAL
Application: A204020 | Product #003 | TE Code: AB
Applicant: ZYDUS PHARMACEUTICALS USA INC
Approved: Nov 30, 2022 | RLD: No | RS: No | Type: RX